FAERS Safety Report 21569360 (Version 1)
Quarter: 2022Q4

REPORT INFORMATION
  Report Type: Spontaneous
  Country: NL (occurrence: NL)
  Receive Date: 20221109
  Receipt Date: 20221109
  Transmission Date: 20230113
  Serious: Yes (Other)
  Sender: FDA-Public Use
  Company Number: None

PATIENT
  Sex: Female

DRUGS (3)
  1. ETHINYL ESTRADIOL\LEVONORGESTREL [Suspect]
     Active Substance: ETHINYL ESTRADIOL\LEVONORGESTREL
     Indication: Contraception
     Dosage: 1 DOSAGE FORMS DAILY; 1 X PER DAY 1 PIECE WITH A STOP WEEK, ETHINYLESTRADIOL/LEVONORGESTREL TABLET 3
     Dates: start: 20210611
  2. EUTHYROX [Suspect]
     Active Substance: LEVOTHYROXINE SODIUM
     Indication: Hypothyroidism
     Dosage: 137 MCG, LEVOTHYROXINE 150UG (SODIUM) / EUTHYROX 150MCG, UNIT DOSE: 137 MCG, FREQUENCY TIME : 1 DAY,
     Dates: start: 20160601
  3. EUTHYROX [Suspect]
     Active Substance: LEVOTHYROXINE SODIUM
     Dosage: INCREASED TO 150 MCG 1DD, LEVOTHYROXINE 150UG (SODIUM) / EUTHYROX 150MCG, UNIT DOSE: 150 MCG, FREQUE

REACTIONS (1)
  - Drug-induced liver injury [Recovering/Resolving]
